FAERS Safety Report 4502299-X (Version None)
Quarter: 2004Q4

REPORT INFORMATION
  Report Type: 
  Country: None (occurrence: None)
  Receive Date: 20041110
  Receipt Date: 20041103
  Transmission Date: 20050328
  Serious: Yes (Life-Threatening, Hospitalization)
  Sender: FDA-Public Use
  Company Number: 200413032GDS

PATIENT
  Age: 65 Year
  Sex: Female
  Weight: 120 kg

DRUGS (7)
  1. CIPROFLOXACIN [Suspect]
     Indication: URINARY TRACT INFECTION
     Dosage: ORAL
     Route: 048
     Dates: start: 20040802, end: 20040803
  2. METFORMIN [Suspect]
     Indication: DIABETES MELLITUS
     Dosage: 850 MG, BID, ORAL
     Route: 048
     Dates: start: 20040601, end: 20040803
  3. IRBESARTAN / HCTZ (HYDROCHLOROTHIAZIDE W/IRBESARTAN) [Suspect]
     Indication: HYPERTENSION
     Dosage: 300 MG, TOTAL DAILY, ORAL
     Route: 048
     Dates: start: 20040601
  4. ASPIRIN [Concomitant]
  5. AMLODIPIN [Concomitant]
  6. ATORVASTATIN [Concomitant]
  7. INSULIN [Concomitant]

REACTIONS (3)
  - LACTIC ACIDOSIS [None]
  - RENAL IMPAIRMENT [None]
  - URINARY TRACT INFECTION [None]
